FAERS Safety Report 7071873-1 (Version None)
Quarter: 2010Q4

REPORT INFORMATION
  Report Type: 
  Country: None (occurrence: None)
  Receive Date: 20101029
  Receipt Date: 20091023
  Transmission Date: 20110411
  Serious: No
  Sender: FDA-Public Use
  Company Number: A0813853A

PATIENT
  Age: 44 Year
  Sex: Male

DRUGS (3)
  1. ADVAIR DISKUS 100/50 [Suspect]
     Indication: PRODUCT USED FOR UNKNOWN INDICATION
     Route: 055
     Dates: start: 20080927
  2. SINGULAIR [Concomitant]
  3. VERAMYST [Concomitant]

REACTIONS (4)
  - DYSPHONIA [None]
  - ORAL DISORDER [None]
  - PHARYNGEAL DISORDER [None]
  - TONGUE DISCOLOURATION [None]
